FAERS Safety Report 5528407-X (Version None)
Quarter: 2007Q4

REPORT INFORMATION
  Report Type: 
  Country: None (occurrence: None)
  Receive Date: 20071123
  Receipt Date: 20071109
  Transmission Date: 20080405
  Serious: Yes (Death, Hospitalization)
  Sender: FDA-Public Use
  Company Number: 2007-05047

PATIENT
  Age: 48 Year
  Sex: Male

DRUGS (2)
  1. PROPRANOLOL [Suspect]
     Indication: HYPERTHYROIDISM
     Dosage: 40 MG, BID, ORAL
     Route: 048
     Dates: start: 20060320, end: 20060322
  2. PROPRANOLOL [Suspect]
     Indication: PALPITATIONS
     Dosage: 40 MG, BID, ORAL
     Route: 048
     Dates: start: 20060320, end: 20060322

REACTIONS (6)
  - CARDIAC ARREST [None]
  - CIRCULATORY COLLAPSE [None]
  - HEPATITIS [None]
  - MULTI-ORGAN FAILURE [None]
  - RENAL FAILURE ACUTE [None]
  - SINUS BRADYCARDIA [None]
